FAERS Safety Report 5157983-4 (Version None)
Quarter: 2006Q4

REPORT INFORMATION
  Report Type: 
  Country: None (occurrence: None)
  Receive Date: 20061127
  Receipt Date: 20061123
  Transmission Date: 20070319
  Serious: Yes (Death)
  Sender: FDA-Public Use
  Company Number: CO-BOEHRINGER INGELHEIM PHARMACEUTICALS, INC.-2006-BP-13707CL

PATIENT
  Age: 66 Year
  Sex: Female
  Weight: 68 kg

DRUGS (4)
  1. MICARDIS [Suspect]
     Indication: HYPERTENSION
     Route: 048
     Dates: start: 20060310
  2. LANTUS [Concomitant]
     Indication: DIABETES MELLITUS
     Dosage: 18 UI
     Dates: start: 20050601
  3. AMARIL (GLIMEPIRIDE) [Concomitant]
     Indication: DIABETES MELLITUS
     Dates: start: 20050701
  4. ASAWIN PEDIATRICO (ACETILSALICILIC ACID) [Concomitant]
     Dates: start: 20050601

REACTIONS (1)
  - INFARCTION [None]
